FAERS Safety Report 6541894-3 (Version None)
Quarter: 2010Q1

REPORT INFORMATION
  Report Type: 
  Country: None (occurrence: None)
  Receive Date: 20100119
  Receipt Date: 20100108
  Transmission Date: 20100710
  Serious: Yes (Life-Threatening, Hospitalization, Other)
  Sender: FDA-Public Use
  Company Number: DE-ROCHE-633126

PATIENT
  Sex: Female
  Weight: 103 kg

DRUGS (5)
  1. ROACTEMRA [Suspect]
     Indication: RHEUMATOID ARTHRITIS
     Route: 042
     Dates: start: 20090325, end: 20090325
  2. ROACTEMRA [Suspect]
     Route: 042
     Dates: start: 20090430, end: 20090430
  3. PREDNISOLONE [Suspect]
     Indication: RHEUMATOID ARTHRITIS
     Route: 048
     Dates: start: 20070613
  4. RAMIGAMMA HCT [Concomitant]
     Indication: HYPERTENSION
     Route: 048
     Dates: start: 20090325
  5. BISOPROLOL [Concomitant]

REACTIONS (6)
  - CHILLS [None]
  - HEPATIC ENZYME INCREASED [None]
  - MICTURITION URGENCY [None]
  - NIGHT SWEATS [None]
  - PYREXIA [None]
  - STREPTOCOCCAL SEPSIS [None]
